FAERS Safety Report 22926767 (Version 3)
Quarter: 2023Q4

REPORT INFORMATION
  Report Type: Report from Study
  Country: EC (occurrence: EC)
  Receive Date: 20230910
  Receipt Date: 20231130
  Transmission Date: 20240109
  Serious: Yes (Life-Threatening)
  Sender: FDA-Public Use
  Company Number: EC-002147023-NVSC2023EC111590

PATIENT
  Age: 55 Year
  Sex: Female

DRUGS (3)
  1. KISQALI [Suspect]
     Active Substance: RIBOCICLIB
     Indication: Breast cancer
     Dosage: 600 MG, QD
     Route: 048
     Dates: start: 20230503, end: 20230516
  2. KISQALI [Suspect]
     Active Substance: RIBOCICLIB
     Dosage: 400 MG, QD
     Route: 048
     Dates: start: 20230503
  3. KISQALI [Suspect]
     Active Substance: RIBOCICLIB
     Dosage: 400 MG, QD
     Route: 048
     Dates: start: 20230523

REACTIONS (22)
  - Feeling abnormal [Recovering/Resolving]
  - Chest pain [Unknown]
  - Aphthous ulcer [Not Recovered/Not Resolved]
  - Heart alternation [Recovering/Resolving]
  - Skin discolouration [Unknown]
  - Autoscopy [Unknown]
  - Weight decreased [Unknown]
  - Peripheral swelling [Unknown]
  - Alopecia [Recovering/Resolving]
  - Anaemia [Unknown]
  - Dyspnoea [Unknown]
  - Dry skin [Recovering/Resolving]
  - Nail disorder [Recovering/Resolving]
  - Lung disorder [Unknown]
  - Tongue discomfort [Recovering/Resolving]
  - Hair disorder [Unknown]
  - Nail discomfort [Unknown]
  - Skin exfoliation [Unknown]
  - Burning sensation [Unknown]
  - Infection [Unknown]
  - Pigmentation disorder [Unknown]
  - Fatigue [Unknown]

NARRATIVE: CASE EVENT DATE: 20230501
